FAERS Safety Report 6003102-1 (Version None)
Quarter: 2008Q4

REPORT INFORMATION
  Report Type: 
  Country: None (occurrence: None)
  Receive Date: 20081215
  Receipt Date: 20081215
  Transmission Date: 20090506
  Serious: Yes (Other)
  Sender: FDA-Public Use
  Company Number: None

PATIENT
  Sex: Female
  Weight: 66.2252 kg

DRUGS (1)
  1. CETIRIZINE [Suspect]
     Indication: RHINITIS ALLERGIC
     Dosage: 5MG/120 DAILY ORAL
     Route: 048
     Dates: start: 20070101, end: 20080101

REACTIONS (3)
  - DRUG EFFECT DECREASED [None]
  - PRODUCT QUALITY ISSUE [None]
  - SINUSITIS [None]
